FAERS Safety Report 19930540 (Version 1)
Quarter: 2021Q4

REPORT INFORMATION
  Report Type: Spontaneous
  Country: JP (occurrence: JP)
  Receive Date: 20211007
  Receipt Date: 20211007
  Transmission Date: 20220303
  Serious: Yes (Other)
  Sender: FDA-Public Use
  Company Number: JP-BAYER-2021A223426

PATIENT
  Age: 65 Year

DRUGS (2)
  1. STIVARGA [Suspect]
     Active Substance: REGORAFENIB
     Indication: Colon cancer recurrent
     Dosage: DAILY DOSE 160 MG
  2. STIVARGA [Suspect]
     Active Substance: REGORAFENIB
     Indication: Colon cancer recurrent
     Dosage: DAILY DOSE 120 MG

REACTIONS (4)
  - Colon cancer recurrent [Unknown]
  - Palmar-plantar erythrodysaesthesia syndrome [Unknown]
  - Malaise [Unknown]
  - Hypertension [Unknown]
